FAERS Safety Report 9124202 (Version 1)
Quarter: 2013Q1

REPORT INFORMATION
  Report Type: Spontaneous
  Country: US (occurrence: US)
  Receive Date: 20130227
  Receipt Date: 20130227
  Transmission Date: 20140127
  Serious: No
  Sender: FDA-Public Use
  Company Number: US-PFIZER INC-2013071168

PATIENT
  Age: 91 Year
  Sex: Female
  Weight: 81.63 kg

DRUGS (6)
  1. LYRICA [Suspect]
     Indication: NEUROPATHY PERIPHERAL
     Dosage: 50 MG, 2X/DAY
     Route: 048
     Dates: start: 20130219, end: 20130225
  2. PERCOCET [Concomitant]
     Indication: SPINAL COLUMN STENOSIS
     Dosage: UNK
  3. LIPITOR [Concomitant]
     Dosage: UNK
  4. LASIX [Concomitant]
     Dosage: UNK
  5. POTASSIUM [Concomitant]
     Dosage: UNK
  6. VITAMINS NOS [Concomitant]
     Dosage: UNKNOWN

REACTIONS (4)
  - Vision blurred [Recovering/Resolving]
  - Local swelling [Recovering/Resolving]
  - Somnolence [Recovering/Resolving]
  - Fatigue [Recovering/Resolving]
